FAERS Safety Report 5476077-1 (Version None)
Quarter: 2007Q4

REPORT INFORMATION
  Report Type: 
  Country: None (occurrence: None)
  Receive Date: 20071003
  Receipt Date: 20070927
  Transmission Date: 20080405
  Serious: Yes (Other)
  Sender: FDA-Public Use
  Company Number: FR-SANOFI-SYNTHELABO-A01200709098

PATIENT
  Sex: Female
  Weight: 60 kg

DRUGS (6)
  1. KERLONE [Suspect]
     Indication: HYPERTENSION
     Route: 048
     Dates: start: 20070201, end: 20070601
  2. KERLONE [Suspect]
     Indication: ATRIAL FIBRILLATION
     Route: 048
     Dates: start: 20070201, end: 20070601
  3. KERLONE [Suspect]
     Route: 048
     Dates: start: 20070601, end: 20070901
  4. KERLONE [Suspect]
     Route: 048
     Dates: start: 20070601, end: 20070901
  5. PREVISCAN [Concomitant]
     Indication: DRUG USE FOR UNKNOWN INDICATION
     Dosage: 3/4 TABLET AT BEDTIME
     Route: 065
  6. IRBESARTAN [Concomitant]
     Indication: DRUG USE FOR UNKNOWN INDICATION
     Dosage: 75 MG
     Route: 065

REACTIONS (1)
  - HALLUCINATIONS, MIXED [None]
